FAERS Safety Report 11814021 (Version 2)
Quarter: 2015Q4

REPORT INFORMATION
  Report Type: Spontaneous
  Country: DE (occurrence: DE)
  Receive Date: 20151209
  Receipt Date: 20151216
  Transmission Date: 20160305
  Serious: Yes (Hospitalization, Other)
  Sender: FDA-Public Use
  Company Number: DE-PFIZER INC-2015435263

PATIENT
  Age: 49 Year
  Sex: Female

DRUGS (17)
  1. ZYPREXA [Suspect]
     Active Substance: OLANZAPINE
     Dosage: 15 MG, DAILY
     Route: 048
     Dates: start: 20120630, end: 20130701
  2. TAVOR [Concomitant]
     Active Substance: LORAZEPAM
     Dosage: 5 MG, DAILY
     Dates: start: 20120628, end: 20120701
  3. VOLTAREN [Suspect]
     Active Substance: DICLOFENAC SODIUM
     Indication: ARTHRALGIA
     Dosage: 150 MG, DAILY
     Route: 048
     Dates: start: 20120625, end: 20120629
  4. IBUPROFEN. [Concomitant]
     Active Substance: IBUPROFEN
     Indication: ARTHRALGIA
     Dosage: UNK
     Dates: start: 20120622, end: 20120624
  5. SEROQUEL [Concomitant]
     Active Substance: QUETIAPINE FUMARATE
     Dosage: UNK
  6. TAVOR [Concomitant]
     Active Substance: LORAZEPAM
     Dosage: 4 MG, DAILY
     Route: 048
     Dates: start: 20120627, end: 20120627
  7. ZYPREXA [Suspect]
     Active Substance: OLANZAPINE
     Dosage: 10 MG, DAILY
     Route: 048
     Dates: start: 20120624, end: 20120629
  8. ORFIRIL [Suspect]
     Active Substance: VALPROIC ACID
     Dosage: 600 MG, DAILY
     Route: 048
     Dates: start: 20120614
  9. ORFIRIL [Suspect]
     Active Substance: VALPROIC ACID
     Dosage: 1800 MG, DAILY
     Route: 048
     Dates: start: 20120619, end: 20120620
  10. ORFIRIL [Suspect]
     Active Substance: VALPROIC ACID
     Dosage: 2000 MG, DAILY
     Route: 048
     Dates: start: 20120621, end: 20120701
  11. CIPRAMIL [Suspect]
     Active Substance: CITALOPRAM HYDROBROMIDE
     Dosage: 10 MG, DAILY
     Route: 048
     Dates: start: 20120628, end: 20120701
  12. VOLTAREN [Suspect]
     Active Substance: DICLOFENAC SODIUM
     Dosage: 75 MG, DAILY
     Dates: start: 20120630, end: 20120630
  13. PANTOPRAZOLE [Suspect]
     Active Substance: PANTOPRAZOLE SODIUM
     Dosage: 60 MG, DAILY
     Route: 048
     Dates: start: 20120628, end: 20120701
  14. ZYPREXA [Suspect]
     Active Substance: OLANZAPINE
     Dosage: 7.5 MG, DAILY
     Route: 048
     Dates: start: 20120623
  15. ORFIRIL [Suspect]
     Active Substance: VALPROIC ACID
     Dosage: 1200 MG, DAILY
     Route: 048
     Dates: start: 20120615, end: 20120617
  16. ORFIRIL [Suspect]
     Active Substance: VALPROIC ACID
     Dosage: 1500 MG, DAILY
     Route: 048
     Dates: start: 20120618
  17. TREVILOR RETARD [Concomitant]
     Active Substance: VENLAFAXINE HYDROCHLORIDE
     Dosage: UNK
     Dates: start: 20120613, end: 20120622

REACTIONS (4)
  - Colitis [Recovering/Resolving]
  - Electrocardiogram QT prolonged [Unknown]
  - Delirium [Unknown]
  - Coagulation test abnormal [Unknown]

NARRATIVE: CASE EVENT DATE: 20120630
